FAERS Safety Report 7215845-2 (Version None)
Quarter: 2011Q1

REPORT INFORMATION
  Report Type: 
  Country: None (occurrence: None)
  Receive Date: 20110107
  Receipt Date: 20110103
  Transmission Date: 20110831
  Serious: Yes (Hospitalization)
  Sender: FDA-Public Use
  Company Number: US-GILEAD-2011-0034837

PATIENT
  Age: 84 Year
  Sex: Female

DRUGS (2)
  1. LETAIRIS [Suspect]
     Indication: PULMONARY ARTERIAL HYPERTENSION
     Route: 048
     Dates: start: 20100930
  2. ADCIRCA [Concomitant]

REACTIONS (4)
  - RASH [None]
  - SKIN ULCER [None]
  - OEDEMA PERIPHERAL [None]
  - SECRETION DISCHARGE [None]
